FAERS Safety Report 5213579-7 (Version None)
Quarter: 2007Q1

REPORT INFORMATION
  Report Type: 
  Country: None (occurrence: None)
  Receive Date: 20070119
  Receipt Date: 20070116
  Transmission Date: 20070707
  Serious: Yes (Death)
  Sender: FDA-Public Use
  Company Number: BR-SHR-BR-2006-027244

PATIENT
  Age: 24 Year
  Sex: Female

DRUGS (4)
  1. DIANE 35 [Suspect]
     Dosage: 1 TAB(S), UNK
     Route: 048
     Dates: start: 20060501, end: 20060701
  2. MERCILON [Suspect]
     Dosage: 1 TAB(S), UNK
     Route: 048
     Dates: end: 20060301
  3. SIBLIMA [Suspect]
     Dosage: 1 TAB(S), UNK
     Route: 048
     Dates: start: 20060701, end: 20060907
  4. DIPIRONA [Concomitant]
     Dosage: UNK, AS REQ'D
     Route: 048

REACTIONS (3)
  - CAVERNOUS SINUS THROMBOSIS [None]
  - CEREBRAL VENOUS THROMBOSIS [None]
  - INTRACRANIAL VENOUS SINUS THROMBOSIS [None]
